FAERS Safety Report 4423709-2 (Version None)
Quarter: 2004Q3

REPORT INFORMATION
  Report Type: 
  Country: None (occurrence: None)
  Receive Date: 20040805
  Receipt Date: 20040722
  Transmission Date: 20050211
  Serious: Yes (Hospitalization)
  Sender: FDA-Public Use
  Company Number: 8006510

PATIENT
  Age: 67 Year
  Sex: Female
  Weight: 77 kg

DRUGS (3)
  1. KEPPRA [Suspect]
     Indication: CONVULSION
     Dosage: 2000 MG PO
     Route: 048
     Dates: start: 20040512, end: 20040527
  2. ERGENYL ^LABAZ^ [Concomitant]
  3. SAROTEN - SLOW RELEASE [Concomitant]

REACTIONS (18)
  - ACUTE PSYCHOSIS [None]
  - CEREBROVASCULAR DISORDER [None]
  - CONVERSION DISORDER [None]
  - CRYING [None]
  - DELIRIUM [None]
  - DISEASE RECURRENCE [None]
  - ELECTROENCEPHALOGRAM ABNORMAL [None]
  - FALL [None]
  - GAIT DISTURBANCE [None]
  - HAEMATOMA [None]
  - HALLUCINATION, VISUAL [None]
  - INFECTION [None]
  - LOSS OF CONSCIOUSNESS [None]
  - MICROANGIOPATHY [None]
  - PYREXIA [None]
  - SIMPLE PARTIAL SEIZURES [None]
  - SOMNOLENCE [None]
  - URINE ANALYSIS ABNORMAL [None]
